FAERS Safety Report 8464981-1 (Version None)
Quarter: 2012Q2

REPORT INFORMATION
  Report Type: 
  Country: None (occurrence: None)
  Receive Date: 20120626
  Receipt Date: 20120618
  Transmission Date: 20120825
  Serious: Yes (Other)
  Sender: FDA-Public Use
  Company Number: DE-ASTELLAS-2012US005599

PATIENT
  Sex: Male

DRUGS (2)
  1. TARCEVA [Suspect]
     Indication: PANCREATIC CARCINOMA
     Dosage: 100 MG, UNKNOWN/D
     Route: 048
     Dates: start: 20120528
  2. TARCEVA [Suspect]
     Dosage: 100 MG, UNKNOWN/D
     Route: 048

REACTIONS (2)
  - HOT FLUSH [None]
  - RASH GENERALISED [None]
